FAERS Safety Report 20023434 (Version 2)
Quarter: 2021Q4

REPORT INFORMATION
  Report Type: Report from Study
  Country: ES (occurrence: None)
  Receive Date: 20211102
  Receipt Date: 20211104
  Transmission Date: 20220303
  Serious: Yes (Hospitalization)
  Sender: FDA-Public Use
  Company Number: ES-Eisai Medical Research-EC-2021-102321

PATIENT
  Age: 68 Year
  Sex: Male
  Weight: 62.2 kg

DRUGS (12)
  1. LENVATINIB [Suspect]
     Active Substance: LENVATINIB
     Indication: Pancreatic carcinoma
     Dosage: STARTING AT 20 MG, FLUCTUATED DOSAGE.
     Route: 048
     Dates: start: 20210428, end: 20210928
  2. LENVATINIB [Suspect]
     Active Substance: LENVATINIB
     Route: 048
     Dates: start: 20210929, end: 20211019
  3. PEMBROLIZUMAB [Suspect]
     Active Substance: PEMBROLIZUMAB
     Indication: Pancreatic carcinoma
     Route: 041
     Dates: start: 20210428, end: 20210909
  4. PEMBROLIZUMAB [Suspect]
     Active Substance: PEMBROLIZUMAB
     Route: 041
     Dates: start: 20210929, end: 20210929
  5. ALLOPURINOL [Concomitant]
     Active Substance: ALLOPURINOL
     Dates: start: 202101
  6. METAMIZOLE MAGNESIUM [Concomitant]
     Active Substance: METAMIZOLE MAGNESIUM
     Dates: start: 202101
  7. GABAPENTIN [Concomitant]
     Active Substance: GABAPENTIN
     Dates: start: 20210426
  8. PALEXIA [Concomitant]
     Active Substance: TAPENTADOL HYDROCHLORIDE
     Dates: start: 20210426
  9. CASENLAX [Concomitant]
     Dates: start: 20210428
  10. MORPHINE [Concomitant]
     Active Substance: MORPHINE
     Dates: start: 20210428
  11. ALLOPURINOL [Concomitant]
     Active Substance: ALLOPURINOL
     Dates: start: 20210428
  12. LOPERAMIDE HYDROCHLORIDE [Concomitant]
     Active Substance: LOPERAMIDE HYDROCHLORIDE
     Dates: start: 20210908

REACTIONS (1)
  - Disease progression [Recovering/Resolving]

NARRATIVE: CASE EVENT DATE: 20211023
